FAERS Safety Report 4459780-1 (Version None)
Quarter: 2004Q3

REPORT INFORMATION
  Report Type: 
  Country: None (occurrence: None)
  Receive Date: 20040928
  Receipt Date: 20040520
  Transmission Date: 20050211
  Serious: Yes (Hospitalization)
  Sender: FDA-Public Use
  Company Number: US-BRISTOL-MYERS SQUIBB COMPANY-12592705

PATIENT
  Sex: Male

DRUGS (4)
  1. KENALOG-40 [Suspect]
     Indication: BACK PAIN
     Dates: start: 20040414, end: 20040414
  2. EFFEXOR [Concomitant]
     Dosage: DURATION OF THERAPY:  FOR A WHILE
  3. LIBRIUM [Concomitant]
     Dosage: DURATION OF THERAPY:  LONG TIME.
  4. ATENOLOL [Concomitant]
     Dosage: DURATION OF THERAPY:  A WHILE

REACTIONS (1)
  - PULMONARY EMBOLISM [None]
